FAERS Safety Report 7827367-6 (Version None)
Quarter: 2011Q4

REPORT INFORMATION
  Report Type: 
  Country: None (occurrence: None)
  Receive Date: 20111020
  Receipt Date: 20111011
  Transmission Date: 20120403
  Serious: Yes (Other)
  Sender: FDA-Public Use
  Company Number: US-BRISTOL-MYERS SQUIBB COMPANY-16154924

PATIENT
  Age: 61 Year
  Sex: Male

DRUGS (4)
  1. ONGLYZA [Suspect]
     Dosage: 08OCT2011 AND ON SUNDAY, 09OCT2011
     Route: 048
     Dates: start: 20111008
  2. AMARYL [Concomitant]
     Indication: DIABETES MELLITUS
  3. METFORMIN HCL [Concomitant]
     Indication: DIABETES MELLITUS
  4. PIOGLITAZONE HCL [Concomitant]
     Indication: DIABETES MELLITUS

REACTIONS (1)
  - PANCREATITIS [None]
